FAERS Safety Report 8181443-X (Version None)
Quarter: 2012Q1

REPORT INFORMATION
  Report Type: 
  Country: None (occurrence: None)
  Receive Date: 20120302
  Receipt Date: 20120223
  Transmission Date: 20120608
  Serious: Yes (Other)
  Sender: FDA-Public Use
  Company Number: US-ASTRAZENECA-2012SE13048

PATIENT
  Age: 53 Year
  Sex: Male

DRUGS (1)
  1. NEXIUM [Suspect]
     Route: 048

REACTIONS (5)
  - APLASTIC ANAEMIA [None]
  - IMMUNODEFICIENCY [None]
  - PNEUMONIA [None]
  - RENAL FAILURE [None]
  - KIDNEY INFECTION [None]
